FAERS Safety Report 9304961 (Version 3)
Quarter: 2013Q3

REPORT INFORMATION
  Report Type: Spontaneous
  Country: US (occurrence: None)
  Receive Date: 20130521
  Receipt Date: 20130701
  Transmission Date: 20140515
  Serious: Yes (Hospitalization)
  Sender: FDA-Public Use
  Company Number: US-JNJFOC-20130504971

PATIENT
  Age: 76 Year
  Sex: Female
  Weight: 79.2 kg

DRUGS (6)
  1. DACOGEN (DECITABINE) LYOPHILIZED POWDER [Suspect]
     Indication: MYELODYSPLASTIC SYNDROME
     Route: 042
     Dates: start: 20120910
  2. VITAMIN D (ERGOCALCIFEROL) [Suspect]
     Indication: VITAMIN D DEFICIENCY
     Route: 048
  3. CALCIUM [Concomitant]
  4. FUROSEMIDE (FUROSEMIDE) [Concomitant]
  5. MVI [Concomitant]
  6. ASA (ACETYLSALICYLIC ACID) [Concomitant]

REACTIONS (6)
  - Myocardial calcification [None]
  - Malaise [None]
  - Fatigue [None]
  - Asthenia [None]
  - Malaise [None]
  - Myocardial infarction [None]
